FAERS Safety Report 6493588-0 (Version None)
Quarter: 2009Q4

REPORT INFORMATION
  Report Type: 
  Country: None (occurrence: None)
  Receive Date: 20091214
  Receipt Date: 20091119
  Transmission Date: 20100525
  Serious: Yes (Other)
  Sender: FDA-Public Use
  Company Number: A0776482A

PATIENT
  Age: 55 Year
  Sex: Female

DRUGS (1)
  1. PROMACTA [Suspect]
     Indication: IDIOPATHIC THROMBOCYTOPENIC PURPURA
     Dosage: 50MG PER DAY
     Route: 048
     Dates: start: 20090127, end: 20090317

REACTIONS (3)
  - DRUG INEFFECTIVE [None]
  - NUCLEATED RED CELLS [None]
  - RED BLOOD CELL ABNORMALITY [None]
